FAERS Safety Report 6764143-X (Version None)
Quarter: 2010Q2

REPORT INFORMATION
  Report Type: 
  Country: None (occurrence: None)
  Receive Date: 20100610
  Receipt Date: 20100602
  Transmission Date: 20101027
  Serious: Yes (Hospitalization)
  Sender: FDA-Public Use
  Company Number: A0844776A

PATIENT
  Age: 73 Year
  Sex: Female

DRUGS (2)
  1. ZANTAC [Suspect]
     Indication: GASTROOESOPHAGEAL REFLUX DISEASE
     Dosage: 150MG PER DAY
     Route: 048
     Dates: start: 20100209
  2. ADVAIR DISKUS 100/50 [Concomitant]

REACTIONS (3)
  - CARDIAC FAILURE CONGESTIVE [None]
  - FLUID RETENTION [None]
  - OEDEMA PERIPHERAL [None]
